FAERS Safety Report 7386208-4 (Version None)
Quarter: 2011Q1

REPORT INFORMATION
  Report Type: 
  Country: None (occurrence: None)
  Receive Date: 20110331
  Receipt Date: 20110210
  Transmission Date: 20110831
  Serious: Yes (Hospitalization)
  Sender: FDA-Public Use
  Company Number: ES-BAYER-201022882GPV

PATIENT
  Sex: Male
  Weight: 77.9 kg

DRUGS (66)
  1. OXALIPLATIN [Suspect]
     Dosage: 170
     Route: 042
     Dates: start: 20100308, end: 20100308
  2. ADDITIONAL STUDY MEDICATION [Suspect]
     Dosage: 800
     Route: 042
     Dates: start: 20100308, end: 20100308
  3. ADDITIONAL STUDY MEDICATION [Suspect]
     Dosage: 800
     Route: 042
     Dates: start: 20100514, end: 20100514
  4. FLUOROURACIL [Suspect]
     Dosage: 800
     Route: 040
     Dates: start: 20100322
  5. FLUOROURACIL [Suspect]
     Dosage: 800
     Route: 040
     Dates: start: 20100614
  6. FLUOROURACIL [Suspect]
     Dosage: 800
     Route: 040
     Dates: start: 20100907
  7. FLUOROURACIL [Suspect]
     Dosage: 4800
     Route: 041
     Dates: start: 20100713, end: 20100715
  8. OXALIPLATIN [Suspect]
     Dosage: 170
     Route: 042
     Dates: start: 20100222, end: 20100222
  9. ADDITIONAL STUDY MEDICATION [Suspect]
     Dosage: 800
     Route: 042
     Dates: start: 20100614, end: 20100614
  10. FLUOROURACIL [Suspect]
     Dosage: 4800
     Route: 041
     Dates: start: 20100222, end: 20100224
  11. FLUOROURACIL [Suspect]
     Dosage: 800
     Route: 040
     Dates: start: 20100810
  12. OXALIPLATIN [Suspect]
     Indication: COLORECTAL CANCER METASTATIC
     Dosage: 170
     Route: 042
     Dates: start: 20100208, end: 20100208
  13. OXALIPLATIN [Suspect]
     Dosage: 170
     Route: 042
     Dates: start: 20100614, end: 20100614
  14. FLUOROURACIL [Suspect]
     Indication: COLORECTAL CANCER METASTATIC
     Dosage: 800
     Route: 040
     Dates: start: 20100208
  15. FLUOROURACIL [Suspect]
     Dosage: 800
     Route: 040
     Dates: start: 20100222
  16. FLUOROURACIL [Suspect]
     Dosage: 800
     Route: 040
     Dates: start: 20100514
  17. FLUOROURACIL [Suspect]
     Dosage: 4800
     Route: 041
     Dates: start: 20100514, end: 20100516
  18. FLUOROURACIL [Suspect]
     Dosage: 4800
     Route: 041
     Dates: start: 20100614, end: 20100616
  19. FLUOROURACIL [Suspect]
     Dosage: 4800
     Route: 041
     Dates: start: 20100727, end: 20100729
  20. FLUOROURACIL [Suspect]
     Dosage: 4800
     Route: 041
     Dates: start: 20100810, end: 20100812
  21. DEXAMETHASONE [Concomitant]
     Indication: PREMEDICATION
     Dosage: 20 MG (DAILY DOSE), QD,
     Dates: start: 20100208, end: 20100907
  22. SORAFENIB (RAF KINASE INHIBITOR) [Suspect]
     Indication: COLORECTAL CANCER STAGE IV
     Route: 048
     Dates: start: 20100208, end: 20100304
  23. SORAFENIB (RAF KINASE INHIBITOR) [Suspect]
     Dosage: 400 MG, QD
     Dates: start: 20100907, end: 20100919
  24. OXALIPLATIN [Suspect]
     Dosage: 170
     Route: 042
     Dates: start: 20100413, end: 20100413
  25. OXALIPLATIN [Suspect]
     Dosage: 170
     Route: 042
     Dates: start: 20100810, end: 20100810
  26. ADDITIONAL STUDY MEDICATION [Suspect]
     Dosage: 800
     Route: 042
     Dates: start: 20100628, end: 20100628
  27. FLUOROURACIL [Suspect]
     Dosage: 4800
     Route: 041
     Dates: start: 20100308, end: 20100310
  28. FLUOROURACIL [Suspect]
     Dosage: 800
     Route: 040
     Dates: start: 20100528
  29. FLUOROURACIL [Suspect]
     Dosage: 800
     Route: 040
     Dates: start: 20100727
  30. SORAFENIB (RAF KINASE INHIBITOR) [Suspect]
     Dosage: UNK, BID
     Dates: start: 20100417, end: 20100512
  31. OXALIPLATIN [Suspect]
     Dosage: 170
     Route: 042
     Dates: start: 20100528, end: 20100528
  32. OXALIPLATIN [Suspect]
     Dosage: 170
     Route: 042
     Dates: start: 20100628, end: 20100628
  33. ADDITIONAL STUDY MEDICATION [Suspect]
     Dosage: 800
     Route: 042
     Dates: start: 20100208, end: 20100208
  34. ADDITIONAL STUDY MEDICATION [Suspect]
     Dosage: 800
     Route: 042
     Dates: start: 20100222, end: 20100222
  35. ADDITIONAL STUDY MEDICATION [Suspect]
     Dosage: 800
     Route: 042
     Dates: start: 20100713, end: 20100713
  36. ADDITIONAL STUDY MEDICATION [Suspect]
     Dosage: 800
     Route: 042
     Dates: start: 20100810, end: 20100810
  37. FLUOROURACIL [Suspect]
     Dosage: 800
     Route: 040
     Dates: start: 20100528
  38. FLUOROURACIL [Suspect]
     Dosage: 4800
     Route: 041
     Dates: start: 20100413, end: 20100415
  39. FLUOROURACIL [Suspect]
     Dosage: 4800
     Route: 041
     Dates: start: 20100528, end: 20100530
  40. OMEPRAZOLE [Concomitant]
     Indication: PROPHYLAXIS
     Dosage: 20 MG (DAILY DOSE), QD, ORAL
     Route: 048
     Dates: start: 20100113
  41. SORAFENIB (RAF KINASE INHIBITOR) [Suspect]
     Dosage: UNK, BID
     Dates: start: 20100305, end: 20100412
  42. SORAFENIB (RAF KINASE INHIBITOR) [Suspect]
     Dosage: 400 MG, BID
     Dates: start: 20100413, end: 20100416
  43. OXALIPLATIN [Suspect]
     Dosage: 170
     Route: 042
     Dates: start: 20100322, end: 20100322
  44. OXALIPLATIN [Suspect]
     Dosage: 170
     Route: 042
     Dates: start: 20100514, end: 20100514
  45. ADDITIONAL STUDY MEDICATION [Suspect]
     Dosage: 800
     Route: 042
     Dates: start: 20100413, end: 20100413
  46. FLUOROURACIL [Suspect]
     Dosage: 4800
     Route: 041
     Dates: start: 20100208, end: 20100210
  47. FLUOROURACIL [Suspect]
     Dosage: 800
     Route: 040
     Dates: start: 20100713
  48. FLUOROURACIL [Suspect]
     Dosage: 4800
     Route: 041
     Dates: start: 20100628, end: 20100630
  49. FLUOROURACIL [Suspect]
     Dosage: 4800
     Route: 041
     Dates: start: 20100824, end: 20100826
  50. SORAFENIB (RAF KINASE INHIBITOR) [Suspect]
     Dosage: UNK, BID
     Dates: start: 20100823, end: 20100906
  51. OXALIPLATIN [Suspect]
     Dosage: 170
     Route: 042
     Dates: start: 20100713, end: 20100713
  52. OXALIPLATIN [Suspect]
     Dosage: 170
     Route: 042
     Dates: start: 20100727, end: 20100727
  53. ADDITIONAL STUDY MEDICATION [Suspect]
     Dosage: 800
     Route: 042
     Dates: start: 20100528, end: 20100528
  54. ADDITIONAL STUDY MEDICATION [Suspect]
     Dosage: 800
     Route: 042
     Dates: start: 20100824, end: 20100824
  55. ADDITIONAL STUDY MEDICATION [Suspect]
     Dosage: 800
     Route: 042
     Dates: start: 20100907, end: 20100907
  56. FLUOROURACIL [Suspect]
     Dosage: 800
     Route: 040
     Dates: start: 20100308
  57. FLUOROURACIL [Suspect]
     Dosage: 800
     Route: 040
     Dates: start: 20100628
  58. FLUOROURACIL [Suspect]
     Dosage: 4800
     Route: 041
     Dates: start: 20100907, end: 20100909
  59. SORAFENIB (RAF KINASE INHIBITOR) [Suspect]
     Dosage: 400 MG, BID
     Dates: start: 20100513, end: 20100822
  60. ADDITIONAL STUDY MEDICATION [Suspect]
     Dosage: 800
     Route: 042
     Dates: start: 20100322, end: 20100322
  61. ADDITIONAL STUDY MEDICATION [Suspect]
     Dosage: 800
     Route: 042
     Dates: start: 20100727, end: 20100727
  62. FLUOROURACIL [Suspect]
     Dosage: 4800
     Route: 041
     Dates: start: 20100322, end: 20100324
  63. FLUOROURACIL [Suspect]
     Dosage: 800
     Route: 040
     Dates: start: 20100413
  64. FLUOROURACIL [Suspect]
     Dosage: 800
     Route: 040
     Dates: start: 20100614
  65. FLUOROURACIL [Suspect]
     Dosage: 800
     Route: 040
     Dates: start: 20100824
  66. ONDANSETRON [Concomitant]
     Indication: PREMEDICATION
     Dosage: 8 MG (DAILY DOSE), QD,
     Dates: start: 20100208, end: 20100907

REACTIONS (1)
  - DEVICE BREAKAGE [None]
